FAERS Safety Report 4751700-5 (Version None)
Quarter: 2005Q3

REPORT INFORMATION
  Report Type: 
  Country: None (occurrence: None)
  Receive Date: 20050822
  Receipt Date: 20050804
  Transmission Date: 20060218
  Serious: Yes (Hospitalization)
  Sender: FDA-Public Use
  Company Number: DSA_26586_2005

PATIENT
  Age: 58 Year
  Sex: Male
  Weight: 75 kg

DRUGS (3)
  1. LORAZEPAM [Suspect]
     Indication: ANXIETY
     Dosage: 2 MG Q DAY PO
     Route: 048
     Dates: start: 20050317, end: 20050430
  2. RISPERIDONE [Suspect]
     Indication: SCHIZOPHRENIA
     Dosage: DF Q DAY PO
     Route: 048
     Dates: start: 20050317, end: 20050430
  3. ZOLPIDEM [Suspect]
     Indication: INSOMNIA
     Dosage: 10 MG Q DAY PO
     Route: 048
     Dates: start: 20050426

REACTIONS (6)
  - DEPRESSIVE SYMPTOM [None]
  - HYPERTENSION [None]
  - INSOMNIA [None]
  - ORAL CANDIDIASIS [None]
  - SUICIDAL IDEATION [None]
  - URINARY TRACT INFECTION [None]
